FAERS Safety Report 18875774 (Version 4)
Quarter: 2021Q2

REPORT INFORMATION
  Report Type: Report from Study
  Country: US (occurrence: US)
  Receive Date: 20210210
  Receipt Date: 20210429
  Transmission Date: 20210717
  Serious: Yes (Hospitalization, Other)
  Sender: FDA-Public Use
  Company Number: NVSC2021US026596

PATIENT
  Age: 65 Year
  Sex: Female

DRUGS (6)
  1. ENTRESTO [Suspect]
     Active Substance: SACUBITRIL\VALSARTAN
     Dosage: 1 DF (97/103 MG), BID
     Route: 048
  2. ENTRESTO [Suspect]
     Active Substance: SACUBITRIL\VALSARTAN
     Dosage: UNK, BID(DOSE WAS TITRATED TO 97/103 MG)
     Route: 065
  3. TORSEMIDE. [Suspect]
     Active Substance: TORSEMIDE
     Indication: PRODUCT USED FOR UNKNOWN INDICATION
     Dosage: UNK
     Route: 065
     Dates: start: 20210224
  4. ENTRESTO [Suspect]
     Active Substance: SACUBITRIL\VALSARTAN
     Indication: CARDIAC FAILURE CHRONIC
     Dosage: 1 DF (24/26 MG), BID
     Route: 048
     Dates: start: 20210108
  5. ENTRESTO [Suspect]
     Active Substance: SACUBITRIL\VALSARTAN
     Dosage: 2 DF, BID (2 TABLETS OF 24/26 MG)
     Route: 048
  6. LASIX [Concomitant]
     Active Substance: FUROSEMIDE
     Indication: PRODUCT USED FOR UNKNOWN INDICATION
     Dosage: UNK
     Route: 065

REACTIONS (14)
  - Pericardial effusion [Unknown]
  - Hypersomnia [Unknown]
  - Myocardial infarction [Unknown]
  - Heart rate decreased [Unknown]
  - Weight increased [Unknown]
  - Confusional state [Unknown]
  - Pneumonia [Unknown]
  - Haemoglobin abnormal [Unknown]
  - Blood pressure increased [Unknown]
  - Blood pressure decreased [Unknown]
  - Ejection fraction decreased [Unknown]
  - Blood potassium increased [Unknown]
  - Bone pain [Unknown]
  - Platelet disorder [Unknown]

NARRATIVE: CASE EVENT DATE: 20210129
